FAERS Safety Report 7036321-6 (Version None)
Quarter: 2010Q4

REPORT INFORMATION
  Report Type: 
  Country: None (occurrence: None)
  Receive Date: 20101008
  Receipt Date: 20100930
  Transmission Date: 20110411
  Serious: Yes (Life-Threatening, Hospitalization)
  Sender: FDA-Public Use
  Company Number: FR-AMGEN-KDC438305

PATIENT
  Sex: Female

DRUGS (6)
  1. NPLATE [Suspect]
     Indication: IDIOPATHIC THROMBOCYTOPENIC PURPURA
     Route: 058
     Dates: start: 20100806, end: 20100907
  2. LEVONORGESTREL AND ETHINYL ESTRADIOL [Suspect]
     Route: 048
     Dates: start: 20080101, end: 20100911
  3. MEDROL [Concomitant]
     Route: 048
     Dates: start: 20100906
  4. MABTHERA [Concomitant]
     Route: 014
     Dates: start: 20100825, end: 20100906
  5. CORTICOSTEROIDS [Concomitant]
     Route: 048
     Dates: start: 20100906
  6. IMMU-G [Concomitant]

REACTIONS (2)
  - PULMONARY EMBOLISM [None]
  - THROMBOCYTOSIS [None]
